FAERS Safety Report 6076340-X (Version None)
Quarter: 2009Q1

REPORT INFORMATION
  Report Type: 
  Country: None (occurrence: None)
  Receive Date: 20090209
  Receipt Date: 20090129
  Transmission Date: 20090719
  Serious: Yes (Disabling, Other)
  Sender: FDA-Public Use
  Company Number: 2009-00377

PATIENT
  Age: 53 Year
  Sex: Male
  Weight: 76 kg

DRUGS (5)
  1. VELCADE [Suspect]
     Indication: WALDENSTROM'S MACROGLOBULINAEMIA
     Dates: start: 20080710, end: 20080916
  2. CNT0328(CNT0328) VIAL [Suspect]
     Indication: WALDENSTROM'S MACROGLOBULINAEMIA
     Dosage: 12 MG/KG, UNK, UNK
     Dates: start: 20070814, end: 20080205
  3. DEXAMETHASONE TAB [Suspect]
     Indication: WALDENSTROM'S MACROGLOBULINAEMIA
     Dates: start: 20080710, end: 20080916
  4. CYCLOPHOSPHAMIDE [Suspect]
     Indication: WALDENSTROM'S MACROGLOBULINAEMIA
     Dates: start: 20070710, end: 20080916
  5. CARFILIZOMIB [Concomitant]

REACTIONS (2)
  - HEPATIC CYST [None]
  - HEPATIC ECHINOCOCCIASIS [None]
